FAERS Safety Report 4937748-6 (Version None)
Quarter: 2006Q1

REPORT INFORMATION
  Report Type: 
  Country: None (occurrence: None)
  Receive Date: 20060302
  Receipt Date: 20060217
  Transmission Date: 20060701
  Serious: Yes (Other)
  Sender: FDA-Public Use
  Company Number: 2006025371

PATIENT
  Age: 39 Year
  Sex: Female

DRUGS (2)
  1. SOMAVERT [Suspect]
     Indication: ACROMEGALY
     Dosage: 10 MG, DAILY, SUBCUTANEOUS
     Route: 058
     Dates: start: 20051028, end: 20051201
  2. BURANA (IBUPROFEN) [Concomitant]

REACTIONS (4)
  - ABDOMINAL PAIN UPPER [None]
  - BILIARY TRACT DISORDER [None]
  - HEADACHE [None]
  - HEPATIC ENZYME INCREASED [None]
